FAERS Safety Report 6662263-1 (Version None)
Quarter: 2010Q1

REPORT INFORMATION
  Report Type: 
  Country: None (occurrence: None)
  Receive Date: 20100331
  Receipt Date: 20100326
  Transmission Date: 20100710
  Serious: Yes (Death)
  Sender: FDA-Public Use
  Company Number: US-CELGENEUS-163-21880-10031521

PATIENT
  Sex: Male
  Weight: 44.946 kg

DRUGS (3)
  1. REVLIMID [Suspect]
     Indication: MULTIPLE MYELOMA
     Route: 048
     Dates: start: 20100201
  2. REVLIMID [Suspect]
     Route: 048
     Dates: start: 20080601
  3. REVLIMID [Suspect]
     Dosage: 10MG-5MG
     Route: 048
     Dates: start: 20080801

REACTIONS (2)
  - DEATH [None]
  - HEART RATE DECREASED [None]
